FAERS Safety Report 12541719 (Version 2)
Quarter: 2016Q3

REPORT INFORMATION
  Report Type: Report from Study
  Country: GR (occurrence: GR)
  Receive Date: 20160708
  Receipt Date: 20160817
  Transmission Date: 20161109
  Serious: Yes (Hospitalization, Other)
  Sender: FDA-Public Use
  Company Number: GR-ROCHE-1789292

PATIENT
  Age: 33 Year
  Sex: Male
  Weight: 83 kg

DRUGS (4)
  1. ZELBORAF [Suspect]
     Active Substance: VEMURAFENIB
     Indication: METASTATIC MALIGNANT MELANOMA
     Route: 048
     Dates: start: 20151127, end: 20160703
  2. COBIMETINIB [Suspect]
     Active Substance: COBIMETINIB
     Route: 048
     Dates: end: 20160806
  3. COBIMETINIB [Suspect]
     Active Substance: COBIMETINIB
     Indication: METASTATIC MALIGNANT MELANOMA
     Dosage: ONCE D(D1-D2 Q28)
     Route: 048
     Dates: start: 20151127, end: 20160703
  4. ZELBORAF [Suspect]
     Active Substance: VEMURAFENIB
     Route: 048
     Dates: end: 20160806

REACTIONS (5)
  - Disease progression [Unknown]
  - Rash [Not Recovered/Not Resolved]
  - Photosensitivity reaction [Not Recovered/Not Resolved]
  - Drug resistance [Unknown]
  - Blister [Unknown]

NARRATIVE: CASE EVENT DATE: 20160702
